FAERS Safety Report 9149515 (Version 1)
Quarter: 2013Q1

REPORT INFORMATION
  Report Type: Spontaneous
  Country: US (occurrence: US)
  Receive Date: 20130308
  Receipt Date: 20130308
  Transmission Date: 20140127
  Serious: No
  Sender: FDA-Public Use
  Company Number: US-ENDO PHARMACEUTICALS INC.-OPCR20120070

PATIENT
  Sex: Male

DRUGS (3)
  1. OPANA ER 30MG [Suspect]
     Indication: BACK PAIN
     Route: 048
     Dates: start: 20120323
  2. OPANA ER 30MG [Suspect]
     Indication: PAIN IN EXTREMITY
  3. OPANA ER [Concomitant]
     Indication: PAIN
     Dosage: UNKNOWN
     Route: 048

REACTIONS (2)
  - Feeling abnormal [Unknown]
  - Drug ineffective [Unknown]
